FAERS Safety Report 4725848-5 (Version None)
Quarter: 2005Q3

REPORT INFORMATION
  Report Type: 
  Country: None (occurrence: None)
  Receive Date: 20050722
  Receipt Date: 20050722
  Transmission Date: 20060218
  Serious: Yes (Hospitalization, Disabling)
  Sender: FDA-Public Use
  Company Number: None

PATIENT
  Age: 75 Year
  Sex: Male
  Weight: 95.2554 kg

DRUGS (4)
  1. MINOCYCLINE 100 MG [Suspect]
     Indication: DRY EYE
     Dosage: 100 MG BID ORAL
     Route: 048
     Dates: start: 20050610, end: 20050624
  2. MINOCYCLINE 100 MG [Suspect]
     Indication: HORDEOLUM
     Dosage: 100 MG BID ORAL
     Route: 048
     Dates: start: 20050610, end: 20050624
  3. ATENOLOL [Concomitant]
  4. GLUCOSAMINE [Concomitant]

REACTIONS (11)
  - ATRIAL FIBRILLATION [None]
  - CHILLS [None]
  - FEELING COLD [None]
  - INFLAMMATION [None]
  - INFLUENZA LIKE ILLNESS [None]
  - INTERSTITIAL LUNG DISEASE [None]
  - MALAISE [None]
  - OXYGEN SATURATION DECREASED [None]
  - PULMONARY FUNCTION TEST ABNORMAL [None]
  - PYREXIA [None]
  - SYNCOPE [None]
